FAERS Safety Report 21720358 (Version 1)
Quarter: 2022Q4

REPORT INFORMATION
  Report Type: Spontaneous
  Country: US (occurrence: US)
  Receive Date: 20221213
  Receipt Date: 20221213
  Transmission Date: 20230113
  Serious: No
  Sender: FDA-Public Use
  Company Number: US-AUROBINDO-AUR-APL-2022-006285

PATIENT
  Age: 61 Year
  Sex: Female
  Weight: 62.6 kg

DRUGS (9)
  1. ATENOLOL [Suspect]
     Active Substance: ATENOLOL
     Indication: Hypertension
     Dosage: ONE AND HALF AT BED TIME (AT NIGHT)
     Route: 048
  2. XTAMPZA ER [Suspect]
     Active Substance: OXYCODONE
     Indication: Idiopathic environmental intolerance
     Dosage: UNK
     Route: 048
     Dates: start: 20190115
  3. XTAMPZA ER [Suspect]
     Active Substance: OXYCODONE
     Indication: Pain
  4. XTAMPZA ER [Suspect]
     Active Substance: OXYCODONE
     Indication: Back pain
  5. XTAMPZA ER [Suspect]
     Active Substance: OXYCODONE
     Indication: Intervertebral disc degeneration
  6. XTAMPZA ER [Suspect]
     Active Substance: OXYCODONE
     Indication: Idiopathic environmental intolerance
     Dosage: 18 MILLIGRAM, TWO TIMES A DAY
     Route: 048
     Dates: start: 2020
  7. XTAMPZA ER [Suspect]
     Active Substance: OXYCODONE
     Indication: Idiopathic environmental intolerance
     Dosage: UNK, TWO TIMES A DAY
     Route: 048
  8. XTAMPZA ER [Suspect]
     Active Substance: OXYCODONE
     Indication: Idiopathic environmental intolerance
     Dosage: 9 MILLIGRAM, TWO TIMES A DAY
     Route: 048
     Dates: start: 2021
  9. XTAMPZA ER [Concomitant]
     Active Substance: OXYCODONE
     Indication: Product used for unknown indication
     Dosage: UNK
     Route: 065

REACTIONS (13)
  - Blood pressure decreased [Not Recovered/Not Resolved]
  - Poor quality sleep [Not Recovered/Not Resolved]
  - Somnolence [Recovering/Resolving]
  - Back pain [Unknown]
  - Feeling abnormal [Recovering/Resolving]
  - Heart rate increased [Recovering/Resolving]
  - Blood pressure increased [Not Recovered/Not Resolved]
  - Electric shock sensation [Recovering/Resolving]
  - Therapeutic response shortened [Unknown]
  - Therapeutic product effect variable [Unknown]
  - Suspected product tampering [Unknown]
  - Product substitution issue [Unknown]
  - Drug ineffective [Unknown]

NARRATIVE: CASE EVENT DATE: 20190115
